FAERS Safety Report 19669023 (Version 1)
Quarter: 2021Q3

REPORT INFORMATION
  Report Type: Report from Study
  Country: US (occurrence: US)
  Receive Date: 20210806
  Receipt Date: 20210806
  Transmission Date: 20211014
  Serious: No
  Sender: FDA-Public Use
  Company Number: US-SAREPTA THERAPEUTICS INC.-SRP2021-001455

PATIENT
  Sex: Male

DRUGS (1)
  1. CASIMERSEN. [Suspect]
     Active Substance: CASIMERSEN
     Indication: DUCHENNE MUSCULAR DYSTROPHY
     Dosage: UNKNOWN

REACTIONS (1)
  - Headache [Unknown]
